FAERS Safety Report 17445604 (Version 5)
Quarter: 2020Q2

REPORT INFORMATION
  Report Type: Spontaneous
  Country: US (occurrence: US)
  Receive Date: 20200221
  Receipt Date: 20200507
  Transmission Date: 20200713
  Serious: Yes (Death, Hospitalization, Other)
  Sender: FDA-Public Use
  Company Number: US-PFIZER INC-2020078149

PATIENT
  Age: 56 Year
  Sex: Female
  Weight: 68.93 kg

DRUGS (6)
  1. CITALOPRAM HYDROBROMIDE. [Concomitant]
     Active Substance: CITALOPRAM HYDROBROMIDE
     Dosage: 20 MG, UNK
     Route: 048
  2. CAMPTOSAR [Suspect]
     Active Substance: IRINOTECAN HYDROCHLORIDE
     Dosage: 260 MG, CYCLIC (3 WEEKS)
     Route: 042
     Dates: start: 20191025
  3. CAMPTOSAR [Suspect]
     Active Substance: IRINOTECAN HYDROCHLORIDE
     Dosage: 150 MG/M2, CYCLIC (EVERY 21 DAYS)
     Route: 042
     Dates: start: 20191025, end: 20191025
  4. LIPITOR [Concomitant]
     Active Substance: ATORVASTATIN CALCIUM
     Dosage: 40 MG, UNK
     Route: 048
  5. CAMPTOSAR [Suspect]
     Active Substance: IRINOTECAN HYDROCHLORIDE
     Indication: LUNG CARCINOMA CELL TYPE UNSPECIFIED STAGE IV
     Dosage: 300 MG, UNK
     Dates: start: 20191025, end: 20191025
  6. HYDROCODONE/ACETAMINOPHEN [Concomitant]
     Active Substance: ACETAMINOPHEN\HYDROCODONE
     Indication: PAIN
     Dosage: 1 DF, AS NEEDED[HYDROCODONE BITARTRATE 5 MG/PARACETAMOL 325 MG]
     Route: 048
     Dates: start: 20190820

REACTIONS (13)
  - Hypoalbuminaemia [Fatal]
  - Product use in unapproved indication [Unknown]
  - Hypotension [Recovering/Resolving]
  - Hypovolaemia [Fatal]
  - Cardiac arrest [Unknown]
  - Bradycardia [Recovering/Resolving]
  - Vein collapse [Unknown]
  - Neutropenia [Fatal]
  - Diarrhoea [Fatal]
  - Off label use [Unknown]
  - Atrial flutter [Unknown]
  - Chest pain [Unknown]
  - Neoplasm progression [Fatal]

NARRATIVE: CASE EVENT DATE: 20191025
